FAERS Safety Report 9664539 (Version 1)
Quarter: 2013Q4

REPORT INFORMATION
  Report Type: Report from Study
  Country: GR (occurrence: GR)
  Receive Date: 20131101
  Receipt Date: 20131101
  Transmission Date: 20140711
  Serious: Yes (Hospitalization)
  Sender: FDA-Public Use
  Company Number: PHHY2013GR123669

PATIENT
  Sex: 0

DRUGS (1)
  1. EXELON PATCH [Suspect]
     Dosage: 4.6 MG, ONCE PER 24 HOURS
     Route: 062

REACTIONS (3)
  - Drug administration error [Unknown]
  - Bradycardia [Recovered/Resolved]
  - Overdose [Unknown]
